FAERS Safety Report 10538387 (Version 1)
Quarter: 2014Q4

REPORT INFORMATION
  Report Type: Report from Study
  Country: CA (occurrence: CA)
  Receive Date: 20141023
  Receipt Date: 20141023
  Transmission Date: 20150529
  Serious: Yes (Other)
  Sender: FDA-Public Use
  Company Number: CA-JNJFOC-20141012143

PATIENT
  Age: 63 Year
  Sex: Female

DRUGS (1)
  1. REMICADE [Suspect]
     Active Substance: INFLIXIMAB
     Indication: CROHN^S DISEASE
     Route: 042
     Dates: start: 20020101, end: 20141017

REACTIONS (1)
  - Nuclear magnetic resonance imaging brain abnormal [Unknown]

NARRATIVE: CASE EVENT DATE: 20141017
